FAERS Safety Report 4674037-1 (Version None)
Quarter: 2005Q2

REPORT INFORMATION
  Report Type: 
  Country: None (occurrence: None)
  Receive Date: 20050525
  Receipt Date: 20050512
  Transmission Date: 20051028
  Serious: Yes (Hospitalization)
  Sender: FDA-Public Use
  Company Number: 2005073650

PATIENT
  Age: 47 Year
  Sex: Male

DRUGS (1)
  1. CEFPODOXIME PROXETIL [Suspect]
     Indication: SINUSITIS
     Dosage: 400 MG , ORAL
     Route: 048
     Dates: start: 20050104, end: 20050105

REACTIONS (3)
  - DISEASE RECURRENCE [None]
  - PANCREATITIS ACUTE [None]
  - SINUSITIS [None]
